FAERS Safety Report 21383257 (Version 1)
Quarter: 2022Q3

REPORT INFORMATION
  Report Type: Spontaneous
  Country: FR (occurrence: FR)
  Receive Date: 20220927
  Receipt Date: 20220927
  Transmission Date: 20221027
  Serious: Yes (Hospitalization)
  Sender: FDA-Public Use
  Company Number: None

PATIENT
  Age: 76 Year
  Sex: Male
  Weight: 82 kg

DRUGS (23)
  1. CARBOPLATIN [Suspect]
     Active Substance: CARBOPLATIN
     Indication: Squamous cell carcinoma of lung
     Dosage: C1
     Route: 042
     Dates: start: 20220614, end: 20220614
  2. CARBOPLATIN [Suspect]
     Active Substance: CARBOPLATIN
     Dosage: C2
     Route: 042
     Dates: start: 20220621, end: 20220621
  3. CARBOPLATIN [Suspect]
     Active Substance: CARBOPLATIN
     Dosage: C3
     Route: 042
     Dates: start: 20220715, end: 20220715
  4. CARBOPLATIN [Suspect]
     Active Substance: CARBOPLATIN
     Dosage: C4
     Route: 042
     Dates: start: 20220722, end: 20220722
  5. CARBOPLATIN [Suspect]
     Active Substance: CARBOPLATIN
     Dosage: C5
     Route: 042
     Dates: start: 20220729, end: 20220729
  6. CARBOPLATIN [Suspect]
     Active Substance: CARBOPLATIN
     Dosage: C6
     Route: 042
     Dates: start: 20220812, end: 20220812
  7. CARBOPLATIN [Suspect]
     Active Substance: CARBOPLATIN
     Dosage: C7
     Route: 042
     Dates: start: 20220819, end: 20220819
  8. PACLITAXEL [Suspect]
     Active Substance: PACLITAXEL
     Indication: Squamous cell carcinoma of lung
     Dosage: C1
     Route: 042
     Dates: start: 20220614, end: 20220614
  9. PACLITAXEL [Suspect]
     Active Substance: PACLITAXEL
     Dosage: C2
     Route: 042
     Dates: start: 20220621, end: 20220621
  10. PACLITAXEL [Suspect]
     Active Substance: PACLITAXEL
     Dosage: C3
     Route: 042
     Dates: start: 20220715, end: 20220715
  11. PACLITAXEL [Suspect]
     Active Substance: PACLITAXEL
     Dosage: C4
     Route: 042
     Dates: start: 20220722, end: 20220722
  12. PACLITAXEL [Suspect]
     Active Substance: PACLITAXEL
     Dosage: C5
     Route: 042
     Dates: start: 20220729, end: 20220729
  13. PACLITAXEL [Suspect]
     Active Substance: PACLITAXEL
     Dosage: C6
     Route: 042
     Dates: start: 20220812, end: 20220812
  14. PACLITAXEL [Suspect]
     Active Substance: PACLITAXEL
     Dosage: C7
     Route: 042
     Dates: start: 20220819, end: 20220819
  15. PREGABALIN [Concomitant]
     Active Substance: PREGABALIN
     Indication: Pain
     Dosage: 200 MG, 1X/DAY
     Route: 048
  16. IRBESARTAN [Concomitant]
     Active Substance: IRBESARTAN
     Indication: Hypertension
     Dosage: 1 DF, 1X/DAY
     Route: 048
  17. DOLIPRANE [Concomitant]
     Active Substance: ACETAMINOPHEN
     Indication: Pain
     Dosage: 3 G, 1X/DAY
     Route: 048
  18. KARDEGIC [Concomitant]
     Active Substance: ASPIRIN DL-LYSINE
     Indication: Cardiovascular event prophylaxis
     Dosage: 1 DF, 1X/DAY
     Route: 048
  19. NICARDIPINE HYDROCHLORIDE [Concomitant]
     Active Substance: NICARDIPINE HYDROCHLORIDE
     Indication: Hypertension
     Dosage: 2 DF, 1X/DAY
     Route: 048
  20. INDACATEROL [Concomitant]
     Active Substance: INDACATEROL
     Indication: Chronic obstructive pulmonary disease
     Dosage: 1 DF, 1X/DAY
     Route: 055
  21. FUROSEMIDE [Concomitant]
     Active Substance: FUROSEMIDE
     Indication: Hypertension
     Dosage: 80 MG, 1X/DAY
     Route: 048
  22. CANDESARTAN CILEXETIL [Concomitant]
     Active Substance: CANDESARTAN CILEXETIL
     Indication: Hypertension
     Dosage: 8 MG, 1X/DAY
     Route: 048
  23. PANTOPRAZOLE [Concomitant]
     Active Substance: PANTOPRAZOLE
     Indication: Prophylaxis against gastrointestinal ulcer
     Dosage: 40 MG, 1X/DAY
     Route: 048

REACTIONS (1)
  - Intestinal ischaemia [Recovered/Resolved]

NARRATIVE: CASE EVENT DATE: 20220822
